FAERS Safety Report 11683999 (Version 3)
Quarter: 2016Q1

REPORT INFORMATION
  Report Type: Report from Study
  Country: CA (occurrence: CA)
  Receive Date: 20151029
  Receipt Date: 20160121
  Transmission Date: 20160525
  Serious: Yes (Hospitalization)
  Sender: FDA-Public Use
  Company Number: PHHY2015CA126928

PATIENT
  Sex: Male

DRUGS (2)
  1. REVOLADE [Suspect]
     Active Substance: ELTROMBOPAG
     Dosage: 75 MG, QD (1.5 TABLETS PER DAY)
     Route: 065
     Dates: start: 20150202
  2. REVOLADE [Suspect]
     Active Substance: ELTROMBOPAG
     Indication: IMMUNE THROMBOCYTOPENIC PURPURA
     Dosage: 50 MG, QD
     Route: 065

REACTIONS (8)
  - Contusion [Unknown]
  - Somnolence [Unknown]
  - Drug ineffective [Unknown]
  - Hypotension [Recovering/Resolving]
  - Infection [Recovering/Resolving]
  - Platelet count decreased [Unknown]
  - Body temperature abnormal [Unknown]
  - Platelet disorder [Unknown]
